FAERS Safety Report 4860886-3 (Version None)
Quarter: 2005Q4

REPORT INFORMATION
  Report Type: 
  Country: None (occurrence: None)
  Receive Date: 20051216
  Receipt Date: 20051206
  Transmission Date: 20060501
  Serious: Yes (Life-Threatening, Hospitalization, Disabling)
  Sender: FDA-Public Use
  Company Number: 2005073597

PATIENT
  Age: 39 Year
  Sex: Female
  Weight: 65 kg

DRUGS (1)
  1. NASANYL (NAFARELIN ACETATE) [Suspect]
     Indication: UTERINE LEIOMYOMA
     Dosage: 400 MCG (200 MCG, TWICE A DAY), NASAL
     Route: 045
     Dates: start: 20050418, end: 20050422

REACTIONS (4)
  - BLOOD PRESSURE INCREASED [None]
  - CEREBRAL INFARCTION [None]
  - DYSARTHRIA [None]
  - SYNCOPE [None]
